FAERS Safety Report 5328375-X (Version None)
Quarter: 2007Q2

REPORT INFORMATION
  Report Type: 
  Country: None (occurrence: None)
  Receive Date: 20070518
  Receipt Date: 20070509
  Transmission Date: 20071010
  Serious: Yes (Hospitalization)
  Sender: FDA-Public Use
  Company Number: CA-JNJFOC-20061005288

PATIENT
  Age: 38 Year
  Sex: Male

DRUGS (4)
  1. REMICADE [Suspect]
     Dosage: THIRD DOSE
  2. REMICADE [Suspect]
     Dosage: SECOND DOSE
  3. REMICADE [Suspect]
     Indication: CROHN'S DISEASE
     Dosage: FIRST DOSE
  4. SOLU-CORTEF [Concomitant]
     Indication: PREMEDICATION
     Route: 042

REACTIONS (1)
  - HAEMORRHAGE [None]
